FAERS Safety Report 10056844 (Version 2)
Quarter: 2014Q2

REPORT INFORMATION
  Report Type: Spontaneous
  Country: JP (occurrence: JP)
  Receive Date: 20140403
  Receipt Date: 20140613
  Transmission Date: 20141212
  Serious: Yes (Other)
  Sender: FDA-Public Use
  Company Number: JP-CUBIST PHARMACEUTICAL, INC.-2014CBST000514

PATIENT
  Sex: 0

DRUGS (6)
  1. CUBICIN [Suspect]
     Indication: EXTRADURAL ABSCESS
     Dosage: 10 MG/KG, ONCE DAILY
     Route: 042
  2. CUBICIN [Suspect]
     Indication: OFF LABEL USE
  3. VANCOMYCIN HYDROCHLORIDE [Concomitant]
     Indication: PRODUCT USED FOR UNKNOWN INDICATION
     Dosage: UNK UNK, UNK
     Route: 065
  4. AMPHOTERICIN B [Concomitant]
     Indication: PRODUCT USED FOR UNKNOWN INDICATION
     Dosage: UNK UNK, UNK
     Route: 065
  5. PREDNISOLONE [Concomitant]
     Indication: RHEUMATOID ARTHRITIS
     Dosage: UNK UNK, UNK
     Route: 065
  6. SIMPONI [Concomitant]
     Indication: RHEUMATOID ARTHRITIS
     Dosage: UNK UNK
     Route: 058

REACTIONS (4)
  - Acute respiratory distress syndrome [Recovered/Resolved]
  - Systemic candida [Recovered/Resolved]
  - Pneumonia [Recovered/Resolved]
  - Overdose [Unknown]
